FAERS Safety Report 14767573 (Version 1)
Quarter: 2018Q2

REPORT INFORMATION
  Report Type: Spontaneous
  Country: FR (occurrence: FR)
  Receive Date: 20180417
  Receipt Date: 20180417
  Transmission Date: 20180711
  Serious: Yes (Other)
  Sender: FDA-Public Use
  Company Number: FR-009507513-1804FRA005676

PATIENT
  Age: 72 Year
  Sex: Female

DRUGS (1)
  1. CELESTENE [Suspect]
     Active Substance: BETAMETHASONE
     Indication: DRUG PROVOCATION TEST
     Dosage: 10.5 MG, IN TOTAL
     Route: 041
     Dates: start: 20171124, end: 20171124

REACTIONS (3)
  - Hypersensitivity [Recovered/Resolved]
  - Urticaria [Recovered/Resolved]
  - Angioedema [Recovered/Resolved]

NARRATIVE: CASE EVENT DATE: 20171124
